FAERS Safety Report 11127414 (Version 1)
Quarter: 2015Q2

REPORT INFORMATION
  Report Type: Spontaneous
  Country: US (occurrence: None)
  Receive Date: 20150519
  Receipt Date: 20150519
  Transmission Date: 20150821
  Serious: Yes (Other)
  Sender: FDA-Public Use
  Company Number: LMI-2015-00233

PATIENT
  Age: 65 Year
  Sex: Male
  Weight: 109 kg

DRUGS (5)
  1. VITAMIN D (ERGOCALCIFEROL) [Concomitant]
     Active Substance: ERGOCALCIFEROL
  2. DEFINITY [Suspect]
     Active Substance: PERFLUTREN
     Indication: STRESS ECHOCARDIOGRAM
     Dosage: 1.3 ML DEFINITY DILUTED IN 8.7 ML SALINE (2 ML,1 IN 1 D)
     Route: 040
     Dates: start: 20150501, end: 20150501
  3. BABY ASPIRIN (ACETYLSALICYLIC ACID) [Concomitant]
     Active Substance: ASPIRIN
  4. LOVASTATIN. [Concomitant]
     Active Substance: LOVASTATIN
  5. LASIX [Concomitant]
     Active Substance: FUROSEMIDE

REACTIONS (6)
  - Agitation [None]
  - Loss of consciousness [None]
  - Dizziness [None]
  - Myocardial infarction [None]
  - Blood pressure decreased [None]
  - Cyanosis [None]

NARRATIVE: CASE EVENT DATE: 20150501
